FAERS Safety Report 5170469-6 (Version None)
Quarter: 2006Q4

REPORT INFORMATION
  Report Type: 
  Country: None (occurrence: None)
  Receive Date: 20061204
  Receipt Date: 20061126
  Transmission Date: 20070319
  Serious: Yes (Hospitalization)
  Sender: FDA-Public Use
  Company Number: 2006145064

PATIENT
  Sex: Male

DRUGS (3)
  1. LYRICA [Suspect]
     Indication: BACK INJURY
     Dosage: 600 MG (600 MG, 1 IN 1 D), ORAL
     Route: 048
  2. OXYCONTIN [Concomitant]
  3. DIAZEPAM [Concomitant]

REACTIONS (3)
  - HYPERSOMNIA [None]
  - NERVOUS SYSTEM DISORDER [None]
  - TREATMENT NONCOMPLIANCE [None]
